FAERS Safety Report 7353841-5 (Version None)
Quarter: 2011Q1

REPORT INFORMATION
  Report Type: 
  Country: None (occurrence: None)
  Receive Date: 20110315
  Receipt Date: 20101029
  Transmission Date: 20110831
  Serious: No
  Sender: FDA-Public Use
  Company Number: US-BAYER-201023270BCC

PATIENT
  Sex: Female
  Weight: 63.182 kg

DRUGS (5)
  1. SIMVASTATIN [Concomitant]
  2. FLOVENT [Concomitant]
  3. ALEVE [Suspect]
     Indication: EAR PAIN
     Dosage: BOTTLE COUNT 250S
     Route: 048
     Dates: start: 20101029
  4. PROTONIX [Concomitant]
     Indication: GASTRIC DISORDER
  5. FLONASE [Concomitant]

REACTIONS (1)
  - EAR PAIN [None]
